FAERS Safety Report 16862516 (Version 1)
Quarter: 2019Q3

REPORT INFORMATION
  Report Type: Spontaneous
  Country: US (occurrence: US)
  Receive Date: 20190927
  Receipt Date: 20190927
  Transmission Date: 20191005
  Serious: No
  Sender: FDA-Public Use
  Company Number: US-ELI_LILLY_AND_COMPANY-US201909008737

PATIENT
  Sex: Male
  Weight: 102.04 kg

DRUGS (5)
  1. REMODULIN [Suspect]
     Active Substance: TREPROSTINIL
     Indication: PULMONARY ARTERIAL HYPERTENSION
     Dosage: UNK, UNKNOWN
     Route: 065
     Dates: start: 20190819
  2. TADALAFIL. [Suspect]
     Active Substance: TADALAFIL
     Indication: PRODUCT USED FOR UNKNOWN INDICATION
     Dosage: UNK, UNKNOWN
     Route: 065
  3. ELIQUIS [Concomitant]
     Active Substance: APIXABAN
     Indication: PRODUCT USED FOR UNKNOWN INDICATION
  4. TADALAFIL. [Suspect]
     Active Substance: TADALAFIL
     Dosage: 1 DOSAGE FORM, BID
     Route: 065
  5. TADALAFIL. [Suspect]
     Active Substance: TADALAFIL
     Dosage: 2 DOSAGE FORM, DAILY
     Route: 065

REACTIONS (2)
  - Product dose omission [Unknown]
  - Vision blurred [Unknown]
